FAERS Safety Report 9502244 (Version 3)
Quarter: 2013Q4

REPORT INFORMATION
  Report Type: Report from Study
  Country: GB (occurrence: GB)
  Receive Date: 20130906
  Receipt Date: 20131017
  Transmission Date: 20140711
  Serious: Yes (Hospitalization)
  Sender: FDA-Public Use
  Company Number: GB-ROCHE-1270719

PATIENT
  Age: 73 Year
  Sex: Female
  Weight: 69.8 kg

DRUGS (10)
  1. RANIBIZUMAB [Suspect]
     Indication: PRODUCT USED FOR UNKNOWN INDICATION
     Dosage: LAST DOSE PRIOR TO SAE ON 06 JUN 2013
     Route: 050
     Dates: start: 20120920
  2. RANIBIZUMAB [Suspect]
     Route: 050
     Dates: start: 20130606, end: 20130611
  3. WARFARIN [Suspect]
     Indication: PRODUCT USED FOR UNKNOWN INDICATION
     Route: 065
  4. ATORVASTATIN [Concomitant]
     Route: 065
     Dates: start: 201201
  5. ATORVASTATIN [Concomitant]
     Route: 065
     Dates: start: 20130611
  6. OMEPRAZOLE [Concomitant]
     Route: 065
     Dates: start: 201201, end: 20130611
  7. ATENOLOL [Concomitant]
     Route: 065
     Dates: start: 20130611
  8. ATENOLOL [Concomitant]
     Route: 065
     Dates: start: 201001
  9. DOXAZOSIN [Concomitant]
     Route: 065
     Dates: start: 20130611
  10. LISINOPRIL [Concomitant]
     Route: 065
     Dates: start: 20130611

REACTIONS (1)
  - Vitreous haemorrhage [Recovered/Resolved with Sequelae]
